FAERS Safety Report 10544787 (Version 1)
Quarter: 2014Q4

REPORT INFORMATION
  Report Type: Spontaneous
  Country: US (occurrence: US)
  Receive Date: 20141027
  Receipt Date: 20141027
  Transmission Date: 20150529
  Serious: No
  Sender: FDA-Public Use
  Company Number: US-TEVA-517511USA

PATIENT
  Sex: Male

DRUGS (1)
  1. COPAXONE [Suspect]
     Active Substance: GLATIRAMER ACETATE
     Dosage: DOSE AND FREQUENCY NOT PROVIDED

REACTIONS (9)
  - Emotional distress [Unknown]
  - Asthma [Unknown]
  - Fatigue [Unknown]
  - Burnout syndrome [Unknown]
  - Malaise [Unknown]
  - Chest discomfort [Unknown]
  - Tremor [Unknown]
  - Chills [Unknown]
  - Stress [Unknown]
